FAERS Safety Report 23893715 (Version 1)
Quarter: 2024Q2

REPORT INFORMATION
  Report Type: Spontaneous
  Country: US (occurrence: None)
  Receive Date: 20240524
  Receipt Date: 20240524
  Transmission Date: 20240716
  Serious: No
  Sender: FDA-Public Use
  Company Number: US-ROCHE-3425454

PATIENT
  Sex: Male
  Weight: 154.36 kg

DRUGS (2)
  1. ACTEMRA [Suspect]
     Active Substance: TOCILIZUMAB
     Indication: Rheumatoid arthritis
     Dosage: 162MG/0.9ML ;ONGOING: YES
     Route: 058
     Dates: start: 2023
  2. ACTEMRA [Suspect]
     Active Substance: TOCILIZUMAB

REACTIONS (1)
  - Contusion [Not Recovered/Not Resolved]

NARRATIVE: CASE EVENT DATE: 20230101
